FAERS Safety Report 18147628 (Version 1)
Quarter: 2020Q3

REPORT INFORMATION
  Report Type: Spontaneous
  Country: DE (occurrence: DE)
  Receive Date: 20200814
  Receipt Date: 20200814
  Transmission Date: 20201103
  Serious: Yes (Hospitalization)
  Sender: FDA-Public Use
  Company Number: DE-AUROBINDO-AUR-APL-2020-038789

PATIENT
  Age: 84 Year
  Sex: Male

DRUGS (2)
  1. LEVOFLOXACIN FILMCOATED TABLET [Suspect]
     Active Substance: LEVOFLOXACIN
     Indication: PRODUCT USED FOR UNKNOWN INDICATION
     Dosage: UNK
     Route: 048
  2. APIXABAN [Suspect]
     Active Substance: APIXABAN
     Indication: PRODUCT USED FOR UNKNOWN INDICATION
     Dosage: 5 MILLIGRAM (1?0?1?0)
     Route: 048

REACTIONS (2)
  - Dysuria [Unknown]
  - Haematuria [Unknown]
